FAERS Safety Report 11890878 (Version 1)
Quarter: 2016Q1

REPORT INFORMATION
  Report Type: Spontaneous
  Country: US (occurrence: US)
  Receive Date: 20160106
  Receipt Date: 20160106
  Transmission Date: 20160526
  Serious: No
  Sender: FDA-Public Use
  Company Number: US-GLENMARK PHARMACEUTICALS INC, USA.-2015GMK014836

PATIENT

DRUGS (1)
  1. CICLOPIROX OLAMINE CREAM USP 0.77% [Suspect]
     Active Substance: CICLOPIROX OLAMINE
     Indication: PARAESTHESIA
     Dosage: UNK, PRN

REACTIONS (2)
  - Treatment noncompliance [Unknown]
  - Drug ineffective for unapproved indication [Unknown]
